FAERS Safety Report 8188661-5 (Version None)
Quarter: 2012Q1

REPORT INFORMATION
  Report Type: 
  Country: None (occurrence: None)
  Receive Date: 20120306
  Receipt Date: 20120228
  Transmission Date: 20120608
  Serious: Yes (Hospitalization, Other)
  Sender: FDA-Public Use
  Company Number: US-MYLANLABS-2012S1004351

PATIENT
  Age: 66 Year
  Sex: Female
  Weight: 36.29 kg

DRUGS (9)
  1. KLONOPIN [Suspect]
     Indication: NERVOUSNESS
     Dates: start: 20110101
  2. CHANTIX [Suspect]
     Indication: SMOKING CESSATION THERAPY
     Dates: start: 20110901, end: 20110901
  3. ADVAIR DISKUS 100/50 [Suspect]
     Indication: RESPIRATORY DISORDER
  4. SINGULAIR [Suspect]
     Indication: RESPIRATORY DISORDER
  5. LEVOTHYROXINE SODIUM [Suspect]
     Indication: THYROIDECTOMY
     Dates: start: 19950101
  6. PROAIR HFA [Suspect]
     Indication: RESPIRATORY DISORDER
  7. IPRATROPIUM BROMIDE AND ALBUTEROL SULFATE [Suspect]
     Indication: RESPIRATORY DISORDER
  8. HYDROCODONE BITARTRATE [Suspect]
     Indication: ARTHRALGIA
     Dates: start: 20110101
  9. NEXIUM [Suspect]
     Indication: GASTRIC DISORDER

REACTIONS (2)
  - POTENTIATING DRUG INTERACTION [None]
  - CEREBROVASCULAR ACCIDENT [None]
